FAERS Safety Report 6775103-7 (Version None)
Quarter: 2010Q2

REPORT INFORMATION
  Report Type: 
  Country: None (occurrence: None)
  Receive Date: 20100617
  Receipt Date: 20100609
  Transmission Date: 20101027
  Serious: Yes (Life-Threatening, Hospitalization)
  Sender: FDA-Public Use
  Company Number: B0661039A

PATIENT
  Sex: Female
  Weight: 54 kg

DRUGS (1)
  1. AUGMENTIN '125' [Suspect]
     Indication: SINUSITIS
     Route: 048
     Dates: start: 20100518, end: 20100526

REACTIONS (3)
  - DRUG ERUPTION [None]
  - DYSPNOEA [None]
  - SWELLING FACE [None]
